FAERS Safety Report 8163621-9 (Version None)
Quarter: 2012Q1

REPORT INFORMATION
  Report Type: 
  Country: None (occurrence: None)
  Receive Date: 20120224
  Receipt Date: 20120223
  Transmission Date: 20120608
  Serious: Yes (Other)
  Sender: FDA-Public Use
  Company Number: US-PFIZER INC-2012048734

PATIENT
  Sex: Female
  Weight: 70.295 kg

DRUGS (5)
  1. GEODON [Suspect]
     Dosage: 80 MG, DAILY
     Dates: end: 20120201
  2. ADDERALL 5 [Concomitant]
     Dosage: 20 MG, 3X/DAY
  3. WELLBUTRIN XL [Concomitant]
     Dosage: UNK
  4. GEODON [Suspect]
     Indication: THINKING ABNORMAL
     Dosage: 240 MG, DAILY
  5. GEODON [Suspect]
     Indication: SUICIDAL IDEATION
     Dosage: UNK

REACTIONS (5)
  - THINKING ABNORMAL [None]
  - SUICIDAL IDEATION [None]
  - FEELING ABNORMAL [None]
  - DEPRESSION [None]
  - PARANOIA [None]
